FAERS Safety Report 12082828 (Version 12)
Quarter: 2021Q2

REPORT INFORMATION
  Report Type: Spontaneous
  Country: CA (occurrence: CA)
  Receive Date: 20160217
  Receipt Date: 20210406
  Transmission Date: 20210716
  Serious: Yes (Other)
  Sender: FDA-Public Use
  Company Number: CA-ROCHE-1712228

PATIENT
  Sex: Female
  Weight: 98 kg

DRUGS (37)
  1. ACTEMRA [Suspect]
     Active Substance: TOCILIZUMAB
     Route: 042
  2. METHOTREXATE. [Suspect]
     Active Substance: METHOTREXATE
     Indication: RHEUMATOID ARTHRITIS
     Dosage: THERAPY DURATION: 6 YEARS
     Route: 048
     Dates: start: 2009, end: 2014
  3. PLAQUENIL [Suspect]
     Active Substance: HYDROXYCHLOROQUINE SULFATE
     Indication: RHEUMATOID ARTHRITIS
     Dosage: THERAPY DURATION: 6 YEARS
     Route: 048
     Dates: start: 2014
  4. NAPROXEN SODIUM. [Suspect]
     Active Substance: NAPROXEN SODIUM
     Indication: PRODUCT USED FOR UNKNOWN INDICATION
     Route: 065
  5. ASA [Concomitant]
     Active Substance: ASPIRIN
  6. HYDROXYCHLOROQUINE [Suspect]
     Active Substance: HYDROXYCHLOROQUINE
     Indication: RHEUMATOID ARTHRITIS
     Route: 048
     Dates: start: 2009, end: 2014
  7. LANTUS [Concomitant]
     Active Substance: INSULIN GLARGINE
     Dosage: SOLUTION
     Route: 058
  8. NAPROSYN [Concomitant]
     Active Substance: NAPROXEN
  9. ACTEMRA [Suspect]
     Active Substance: TOCILIZUMAB
     Route: 042
  10. ACETYLSALICYLIC ACID [Concomitant]
     Active Substance: ASPIRIN
     Route: 065
  11. ACETYLSALICYLIC ACID [Concomitant]
     Active Substance: ASPIRIN
     Route: 065
  12. ASA [Concomitant]
     Active Substance: ASPIRIN
  13. VITAMIN D3 [Concomitant]
     Active Substance: CHOLECALCIFEROL
  14. XELJANZ [Concomitant]
     Active Substance: TOFACITINIB CITRATE
     Indication: RHEUMATOID ARTHRITIS
     Route: 048
     Dates: start: 20150810
  15. CALCIUM [Concomitant]
     Active Substance: CALCIUM
  16. ARAVA [Suspect]
     Active Substance: LEFLUNOMIDE
     Route: 048
  17. ENBREL [Suspect]
     Active Substance: ETANERCEPT
     Indication: RHEUMATOID ARTHRITIS
     Dosage: THERAPY DURATION: 195 DAYS?FORM OF ADMIN TEXT: SOLUTION SUBCUTANEOUS
     Route: 058
     Dates: start: 2009, end: 2010
  18. ENBREL [Suspect]
     Active Substance: ETANERCEPT
     Route: 058
     Dates: start: 20101004, end: 20110416
  19. METHOTREXATE SODIUM. [Suspect]
     Active Substance: METHOTREXATE SODIUM
     Indication: RHEUMATOID ARTHRITIS
     Route: 048
     Dates: start: 2009, end: 2014
  20. LOZIDE (CANADA) [Concomitant]
     Route: 065
  21. ENBREL [Suspect]
     Active Substance: ETANERCEPT
     Route: 058
  22. ORENCIA [Suspect]
     Active Substance: ABATACEPT
     Indication: RHEUMATOID ARTHRITIS
     Route: 042
     Dates: start: 201104, end: 2014
  23. PLAQUENIL [Suspect]
     Active Substance: HYDROXYCHLOROQUINE SULFATE
     Route: 048
  24. ACTEMRA [Suspect]
     Active Substance: TOCILIZUMAB
     Indication: RHEUMATOID ARTHRITIS
     Dosage: 4?8MG/KG
     Route: 042
  25. APO?HYDROXYQUINE [Suspect]
     Active Substance: HYDROXYCHLOROQUINE SULFATE
     Indication: PRODUCT USED FOR UNKNOWN INDICATION
     Route: 048
     Dates: start: 2009, end: 2014
  26. LEFLUNOMIDE. [Suspect]
     Active Substance: LEFLUNOMIDE
     Indication: PRODUCT USED FOR UNKNOWN INDICATION
     Route: 048
     Dates: start: 2010
  27. METHOTREXATE. [Suspect]
     Active Substance: METHOTREXATE
     Dosage: THERAPY DURATION: 6 YEARS
     Route: 030
  28. HYDROXYCHLOROQUINE SULFATE. [Suspect]
     Active Substance: HYDROXYCHLOROQUINE SULFATE
     Indication: RHEUMATOID ARTHRITIS
     Route: 048
  29. RAMIPRIL. [Concomitant]
     Active Substance: RAMIPRIL
     Route: 065
  30. ERGOCALCIFEROL. [Concomitant]
     Active Substance: ERGOCALCIFEROL
     Route: 065
  31. ARAVA [Suspect]
     Active Substance: LEFLUNOMIDE
     Indication: RHEUMATOID ARTHRITIS
     Dosage: ADEQUATE TRIAL OF 3MONTHS IN 2010
     Route: 048
  32. ORENCIA [Suspect]
     Active Substance: ABATACEPT
     Route: 042
  33. HYDROXYCHLOROQUINE SULFATE. [Suspect]
     Active Substance: HYDROXYCHLOROQUINE SULFATE
     Indication: PRODUCT USED FOR UNKNOWN INDICATION
     Route: 048
     Dates: start: 2009, end: 2014
  34. NAPROXEN SODIUM. [Suspect]
     Active Substance: NAPROXEN SODIUM
     Route: 065
  35. APO?LEFLUNOMIDE [Suspect]
     Active Substance: LEFLUNOMIDE
     Indication: PRODUCT USED FOR UNKNOWN INDICATION
     Route: 048
  36. PREDNISONE. [Concomitant]
     Active Substance: PREDNISONE
     Route: 065
  37. METFORMIN [Concomitant]
     Active Substance: METFORMIN HYDROCHLORIDE
     Indication: PRODUCT USED FOR UNKNOWN INDICATION
     Route: 065

REACTIONS (9)
  - Drug ineffective [Unknown]
  - Interstitial lung disease [Not Recovered/Not Resolved]
  - Therapeutic product effect decreased [Not Recovered/Not Resolved]
  - Red blood cell sedimentation rate abnormal [Not Recovered/Not Resolved]
  - Contraindicated product administered [Not Recovered/Not Resolved]
  - Rheumatoid arthritis [Not Recovered/Not Resolved]
  - Joint swelling [Not Recovered/Not Resolved]
  - Impaired work ability [Not Recovered/Not Resolved]
  - Condition aggravated [Not Recovered/Not Resolved]
